FAERS Safety Report 25630246 (Version 2)
Quarter: 2025Q3

REPORT INFORMATION
  Report Type: Report from Study
  Country: US (occurrence: US)
  Receive Date: 20250801
  Receipt Date: 20250903
  Transmission Date: 20251020
  Serious: No
  Sender: ACADIA PHARMACEUTICALS
  Company Number: US-ACADIA PHARMACEUTICALS INC.-ACA-2025-PIM-008836

PATIENT
  Sex: Male

DRUGS (3)
  1. NUPLAZID [Suspect]
     Active Substance: PIMAVANSERIN TARTRATE
     Indication: Parkinson^s disease psychosis
     Dosage: 34 MILLIGRAM, QD
     Route: 048
     Dates: start: 20221110
  2. DONEPEZIL [Concomitant]
     Active Substance: DONEPEZIL
  3. DULOXETINE [Concomitant]
     Active Substance: DULOXETINE

REACTIONS (2)
  - Oedema peripheral [Unknown]
  - Drug ineffective [Unknown]
